FAERS Safety Report 16318433 (Version 2)
Quarter: 2020Q3

REPORT INFORMATION
  Report Type: Spontaneous
  Country: US (occurrence: US)
  Receive Date: 20190516
  Receipt Date: 20200720
  Transmission Date: 20201102
  Serious: Yes (Hospitalization, Other)
  Sender: FDA-Public Use
  Company Number: US-SUN PHARMACEUTICAL INDUSTRIES LTD-2019R1-208108

PATIENT
  Age: 50 Year
  Sex: Female

DRUGS (1)
  1. LIOTHYRONINE [Suspect]
     Active Substance: LIOTHYRONINE
     Indication: HYPOTHYROIDISM
     Dosage: UNK
     Route: 065

REACTIONS (10)
  - Road traffic accident [Unknown]
  - Drug abuse [Unknown]
  - Bradycardia [Unknown]
  - Cardiogenic shock [Unknown]
  - Thyroxine increased [Unknown]
  - Blood thyroid stimulating hormone abnormal [Unknown]
  - Brain injury [Unknown]
  - Cardiac arrest [Unknown]
  - Electrocardiogram ST segment depression [Unknown]
  - Nodal rhythm [Unknown]
